FAERS Safety Report 10166070 (Version 3)
Quarter: 2014Q2

REPORT INFORMATION
  Report Type: Spontaneous
  Country: DE (occurrence: DE)
  Receive Date: 20140512
  Receipt Date: 20140623
  Transmission Date: 20141212
  Serious: Yes (Hospitalization, Other)
  Sender: FDA-Public Use
  Company Number: DE-PFIZER INC-2014056269

PATIENT
  Age: 70 Year
  Sex: Female

DRUGS (1)
  1. SUTENT [Suspect]
     Indication: RENAL CELL CARCINOMA
     Dosage: 37.5 UNK, UNK
     Route: 048
     Dates: start: 20091130, end: 201002

REACTIONS (2)
  - Leukopenia [Recovered/Resolved]
  - Hypophosphataemia [Recovered/Resolved]
